FAERS Safety Report 8909783 (Version 2)
Quarter: 2013Q1

REPORT INFORMATION
  Report Type: Spontaneous
  Country: US (occurrence: US)
  Receive Date: 20121115
  Receipt Date: 20130102
  Transmission Date: 20140127
  Serious: Yes (Hospitalization, Other)
  Sender: FDA-Public Use
  Company Number: US-PFIZER INC-2012282462

PATIENT
  Age: 93 Year
  Sex: Male

DRUGS (17)
  1. REVATIO [Suspect]
     Indication: PULMONARY HYPERTENSION
     Dosage: 20 MG, 2X/DAY
     Route: 048
     Dates: start: 20120920, end: 201210
  2. FINASTERIDE [Concomitant]
     Dosage: 5 MG, 1X/DAY
  3. DULOXETINE HYDROCHLORIDE [Concomitant]
     Dosage: 60 MG, 1X/DAY
  4. MIRTAZAPINE [Concomitant]
     Dosage: 15 MG, 1X/DAY BEFORE BEDTIME IN THE EVENING
  5. PROTONIX [Concomitant]
     Dosage: 40 MG, 1X/DAY
  6. LASIX [Concomitant]
     Dosage: 20 MG, 2X/DAY
  7. HYDRALAZINE HYDROCHLORIDE [Concomitant]
     Dosage: 25 MG, 2X/DAY
  8. RANEXA [Concomitant]
     Dosage: 500 MG, 2X/DAY
  9. TOPROL XL [Concomitant]
     Dosage: 100 MG, 1X/DAY
  10. COUMADINE [Concomitant]
     Dosage: 1 MG, 1 TABLET 1 MGX2D (M + TH) AND 2 MG X 5D
  11. SIMVASTATIN [Concomitant]
     Dosage: 10 MG, 1X/DAY
  12. ACETAMINOPHEN [Concomitant]
     Dosage: 650 MG, AS NEEDED
  13. DOCUSATE SODIUM [Concomitant]
     Dosage: 100 MG, 2X/DAY
  14. MIRALAX [Concomitant]
     Dosage: 1 PACKET MIXED WITH 8 OUNCES OF FLUID TWICE A DAY
  15. POTASSIUM CHLORIDE [Concomitant]
     Dosage: 20 MEQ, DAILY
  16. SUCRALFATE [Concomitant]
     Dosage: 1 G, 3X/DAY
  17. NITROGLYCERIN [Concomitant]
     Dosage: 0.4 MG, AS NEEDED
     Route: 060

REACTIONS (11)
  - Fall [Unknown]
  - Head injury [Unknown]
  - Encephalopathy [Unknown]
  - Ammonia increased [Recovering/Resolving]
  - Tremor [Recovered/Resolved]
  - Asthenia [Unknown]
  - Lethargy [Unknown]
  - Ascites [Unknown]
  - Hepatic cirrhosis [Unknown]
  - Pancytopenia [Unknown]
  - Hepatitis A antibody positive [Unknown]
